FAERS Safety Report 4283647-5 (Version None)
Quarter: 2004Q1

REPORT INFORMATION
  Report Type: 
  Country: None (occurrence: None)
  Receive Date: 20040115
  Receipt Date: 20030317
  Transmission Date: 20041129
  Serious: Yes (Death, Hospitalization)
  Sender: FDA-Public Use
  Company Number: NSADSS2003013764

PATIENT
  Age: 66 Year
  Sex: Female
  Weight: 80.2867 kg

DRUGS (11)
  1. DOXIL [Suspect]
     Indication: ENDOMETRIAL CANCER
     Dosage: 80 MG, INTRAVENOUS DRIP
     Route: 041
     Dates: start: 20030115, end: 20030115
  2. PHENERGAN [Concomitant]
  3. VICODIN [Concomitant]
  4. KLOR-CON [Concomitant]
  5. MYLICON (DIMETICONE, ACTIVATED) [Concomitant]
  6. MAGOX (MAGNESIUM OXIDE) [Concomitant]
  7. REMERON [Concomitant]
  8. WARFARIN SODIUM [Concomitant]
  9. ORAMORPH SR [Concomitant]
  10. HYDROCODONE (HYDROCODONE) [Concomitant]
  11. METRONIDAZOLE [Concomitant]

REACTIONS (1)
  - CONDITION AGGRAVATED [None]
